FAERS Safety Report 13949926 (Version 5)
Quarter: 2017Q4

REPORT INFORMATION
  Report Type: Spontaneous
  Country: FR (occurrence: FR)
  Receive Date: 20170908
  Receipt Date: 20171215
  Transmission Date: 20180320
  Serious: Yes (Hospitalization, Other)
  Sender: FDA-Public Use
  Company Number: FR-ABBVIE-17P-056-2090994-00

PATIENT
  Age: 65 Year
  Sex: Female
  Weight: 43 kg

DRUGS (3)
  1. DICETEL [Suspect]
     Active Substance: PINAVERIUM BROMIDE
     Indication: COLITIS
     Dosage: 2 DF, QD
     Route: 065
     Dates: start: 20170817, end: 20170819
  2. CREON [Suspect]
     Active Substance: PANCRELIPASE AMYLASE\PANCRELIPASE LIPASE\PANCRELIPASE PROTEASE
     Indication: COLITIS
     Dosage: 3 DF, QD
     Route: 048
     Dates: start: 20170817, end: 20170819
  3. DUPHALAC [Concomitant]
     Active Substance: LACTULOSE
     Indication: PRODUCT USED FOR UNKNOWN INDICATION
     Dosage: UNK
     Route: 065

REACTIONS (13)
  - Weight decreased [Unknown]
  - Flatulence [Unknown]
  - Headache [Unknown]
  - Off label use [Recovered/Resolved]
  - Cardiac disorder [Unknown]
  - Anaphylactic shock [Unknown]
  - Adverse event [Unknown]
  - Erythema [Recovered/Resolved]
  - Oedema [Recovered/Resolved]
  - Tinnitus [Recovered/Resolved]
  - Movement disorder [Unknown]
  - Epistaxis [Unknown]
  - Urticaria [Recovered/Resolved]

NARRATIVE: CASE EVENT DATE: 20170817
